FAERS Safety Report 10184960 (Version 2)
Quarter: 2014Q2

REPORT INFORMATION
  Report Type: Spontaneous
  Country: CH (occurrence: None)
  Receive Date: 20140519
  Receipt Date: 20140523
  Transmission Date: 20141212
  Serious: Yes (Disabling, Other)
  Sender: FDA-Public Use
  Company Number: 2014-19547

PATIENT
  Age: 76 Year
  Sex: Female

DRUGS (2)
  1. EYLEA (ALFIBERCEPT) INJECTION [Suspect]
     Indication: AGE-RELATED MACULAR DEGENERATION
     Dosage: 2 INJECTION
     Dates: start: 20130822
  2. LUCENTIS (RANIBIZUMAB) [Concomitant]

REACTIONS (2)
  - Blindness [None]
  - Atrophy [None]
